FAERS Safety Report 18944146 (Version 1)
Quarter: 2021Q1

REPORT INFORMATION
  Report Type: Spontaneous
  Country: DE (occurrence: DE)
  Receive Date: 20210226
  Receipt Date: 20210226
  Transmission Date: 20210420
  Serious: Yes (Hospitalization)
  Sender: FDA-Public Use
  Company Number: NVSC2021DE036105

PATIENT
  Age: 10 Year
  Sex: Female
  Weight: 41 kg

DRUGS (5)
  1. AMOXICILLIN RATIOPHARM [Suspect]
     Active Substance: AMOXICILLIN
     Indication: OTITIS MEDIA
     Dosage: 1950 MG, QD (DAILY DOSE: 1950 MG MILLGRAM(S) EVERY DAYS 3 SEPARATED DOSES)
     Route: 048
     Dates: start: 20190612, end: 20190615
  2. AMOXI ? 1 A PHARMA [Suspect]
     Active Substance: AMOXICILLIN
     Indication: OTITIS MEDIA
     Dosage: 1950 MG, QD (DAILY DOSE: 1950 MG MILLGRAM(S) EVERY DAYS 3 SEPARATED DOSES)
     Route: 048
     Dates: start: 20190608, end: 20190612
  3. PREDNISOLON [Concomitant]
     Active Substance: PREDNISOLONE
     Indication: DERMATITIS ALLERGIC
     Dosage: UNK
     Route: 048
     Dates: start: 20190615, end: 20190615
  4. FENISTIL [Concomitant]
     Active Substance: DIMETHINDENE
     Indication: DERMATITIS ALLERGIC
     Dosage: UNK
     Route: 048
     Dates: start: 20190615, end: 20190615
  5. CETIRIZIN [Concomitant]
     Active Substance: CETIRIZINE HYDROCHLORIDE
     Indication: DERMATITIS ALLERGIC
     Dosage: 5 MG
     Route: 048
     Dates: start: 20190615, end: 20190615

REACTIONS (7)
  - Peripheral swelling [Recovered/Resolved]
  - Respiratory disorder [Recovered/Resolved]
  - Urticaria [Recovered/Resolved]
  - Hypersensitivity [Recovered/Resolved]
  - Headache [Recovered/Resolved]
  - Throat tightness [Recovered/Resolved]
  - Oropharyngeal pain [Recovered/Resolved]

NARRATIVE: CASE EVENT DATE: 20190615
